FAERS Safety Report 25842973 (Version 1)
Quarter: 2025Q3

REPORT INFORMATION
  Report Type: Spontaneous
  Country: US (occurrence: US)
  Receive Date: 20250924
  Receipt Date: 20250924
  Transmission Date: 20251021
  Serious: Yes (Other)
  Sender: SERVIER
  Company Number: US-SERVIER-S25013480

PATIENT

DRUGS (1)
  1. ONCASPAR [Suspect]
     Active Substance: PEGASPARGASE
     Indication: Product used for unknown indication
     Route: 042

REACTIONS (2)
  - Hepatotoxicity [Unknown]
  - Pancreatitis [Unknown]
